FAERS Safety Report 5727463-3 (Version None)
Quarter: 2008Q2

REPORT INFORMATION
  Report Type: 
  Country: None (occurrence: None)
  Receive Date: 20080505
  Receipt Date: 20080424
  Transmission Date: 20081010
  Serious: Yes (Other)
  Sender: FDA-Public Use
  Company Number: PHHY2008JP05912

PATIENT

DRUGS (1)
  1. ZOMETA [Suspect]
     Indication: MULTIPLE MYELOMA
     Dosage: 4 MG, UNK
     Route: 041
     Dates: start: 20070222, end: 20070809

REACTIONS (8)
  - BONE DEBRIDEMENT [None]
  - BONE DISORDER [None]
  - DENTAL TREATMENT [None]
  - GINGIVAL ATROPHY [None]
  - GINGIVAL DISORDER [None]
  - OSTEONECROSIS [None]
  - SWELLING [None]
  - TOOTH LOSS [None]
